FAERS Safety Report 6218163-4 (Version None)
Quarter: 2009Q2

REPORT INFORMATION
  Report Type: 
  Country: None (occurrence: None)
  Receive Date: 20090608
  Receipt Date: 20090530
  Transmission Date: 20091009
  Serious: Yes (Hospitalization)
  Sender: FDA-Public Use
  Company Number: PHHY2009MX21190

PATIENT
  Age: 66 Year
  Sex: Female

DRUGS (1)
  1. ACLASTA [Suspect]
     Indication: OSTEOPOROSIS
     Dosage: 1 INJECTION (5MG/100ML) PER YEAR
     Dates: start: 20080801

REACTIONS (4)
  - BREAST DISCOMFORT [None]
  - HYPOTENSION [None]
  - PAIN [None]
  - PAIN IN EXTREMITY [None]
